FAERS Safety Report 4580898-7 (Version None)
Quarter: 2005Q1

REPORT INFORMATION
  Report Type: 
  Country: None (occurrence: None)
  Receive Date: 20050214
  Receipt Date: 20040622
  Transmission Date: 20050727
  Serious: No
  Sender: FDA-Public Use
  Company Number: US-GLAXOSMITHKLINE-A0515604A

PATIENT
  Sex: Female

DRUGS (11)
  1. LAMICTAL [Suspect]
     Indication: DEPRESSION
     Dosage: 100MG PER DAY
     Route: 048
  2. WELLBUTRIN SR [Concomitant]
     Dosage: 150MG THREE TIMES PER DAY
     Route: 048
     Dates: start: 19980101
  3. ATIVAN [Concomitant]
     Dosage: .5MG TWICE PER DAY
     Route: 048
     Dates: start: 19930101
  4. THYROID TAB [Concomitant]
  5. ACCUPRIL [Concomitant]
  6. PREMARIN [Concomitant]
  7. FUROSEMIDE [Concomitant]
  8. ASPIRIN [Concomitant]
  9. MULTIVITAMIN [Concomitant]
  10. CALCIUM GLUCONATE [Concomitant]
  11. TOPROL-XL [Concomitant]

REACTIONS (3)
  - ARTHRALGIA [None]
  - NECK PAIN [None]
  - PAIN IN EXTREMITY [None]
